FAERS Safety Report 20021114 (Version 1)
Quarter: 2021Q4

REPORT INFORMATION
  Report Type: Report from Study
  Country: DE (occurrence: DE)
  Receive Date: 20211101
  Receipt Date: 20211101
  Transmission Date: 20220303
  Serious: Yes (Other)
  Sender: FDA-Public Use
  Company Number: DE-002147023-NVSC2021DE158311

PATIENT
  Age: 80 Year
  Sex: Male

DRUGS (10)
  1. PREDNISOLONE [Suspect]
     Active Substance: PREDNISOLONE
     Indication: Hypopituitarism
     Dosage: 1 DOSAGE FORM, (10 UNIT UNKNOWN) (START DATE: 31 MAR (YEAR NOT SPECIFIED)
     Route: 065
  2. OMNITROPE [Suspect]
     Active Substance: SOMATROPIN
     Indication: Growth hormone deficiency
     Dosage: 0.3 MILLIGRAM, QD, (1 DF (5 MG/ 1.5 ML))
     Route: 065
     Dates: start: 20170724
  3. OMNITROPE [Suspect]
     Active Substance: SOMATROPIN
     Indication: Hypopituitarism
  4. SIMVASTATIN [Concomitant]
     Active Substance: SIMVASTATIN
     Indication: Hypercholesterolaemia
     Dosage: UNK
     Route: 048
     Dates: start: 20170331
  5. ALLOPURINOL [Concomitant]
     Active Substance: ALLOPURINOL
     Indication: Hyperuricaemia
     Dosage: UNK
     Route: 048
     Dates: start: 20170331
  6. TESTOSTERONE [Concomitant]
     Active Substance: TESTOSTERONE
     Indication: Luteinising hormone deficiency
     Dosage: UNK
     Route: 061
     Dates: start: 20170413
  7. TESTOSTERONE [Concomitant]
     Active Substance: TESTOSTERONE
     Indication: Follicle stimulating hormone deficiency
  8. METFORMIN [Concomitant]
     Active Substance: METFORMIN HYDROCHLORIDE
     Indication: Type 2 diabetes mellitus
     Dosage: UNK
     Route: 048
     Dates: start: 20170331
  9. METOPROLOL [Concomitant]
     Active Substance: METOPROLOL
     Indication: Hypertension
     Dosage: 2 DOSAGE FORM, (47.5 UNIT UNKNOWN) (START DATE: 31 MAR (YEAR NOT SPECIFIED)
     Route: 048
     Dates: start: 20170331
  10. VALSARTAN [Concomitant]
     Active Substance: VALSARTAN
     Indication: Hypertension
     Dosage: UNK
     Route: 048
     Dates: start: 20170331

REACTIONS (9)
  - Addison^s disease [Recovered/Resolved]
  - Bradykinesia [Recovered/Resolved]
  - Micturition urgency [Recovered/Resolved]
  - Pyrexia [Recovered/Resolved]
  - Back pain [Recovered/Resolved]
  - Musculoskeletal stiffness [Recovered/Resolved]
  - Disorientation [Recovered/Resolved]
  - Hypertension [Recovered/Resolved]
  - Urinary tract infection bacterial [Recovered/Resolved]

NARRATIVE: CASE EVENT DATE: 20190102
